FAERS Safety Report 5955621-1 (Version None)
Quarter: 2008Q4

REPORT INFORMATION
  Report Type: 
  Country: None (occurrence: None)
  Receive Date: 20081117
  Receipt Date: 20081106
  Transmission Date: 20090506
  Serious: Yes (Other)
  Sender: FDA-Public Use
  Company Number: JP-PFIZER INC-2008088237

PATIENT
  Sex: Male
  Weight: 67 kg

DRUGS (3)
  1. CHAMPIX [Suspect]
     Route: 048
     Dates: start: 20080926, end: 20081009
  2. REMICUT [Concomitant]
     Route: 048
  3. LENDORMIN [Concomitant]
     Route: 048

REACTIONS (2)
  - DIARRHOEA [None]
  - MELAENA [None]
